FAERS Safety Report 16488120 (Version 6)
Quarter: 2019Q3

REPORT INFORMATION
  Report Type: Report from Study
  Country: BR (occurrence: BR)
  Receive Date: 20190627
  Receipt Date: 20190919
  Transmission Date: 20191004
  Serious: Yes (Hospitalization, Disabling, Other)
  Sender: FDA-Public Use
  Company Number: PHHY2016BR135918

PATIENT
  Age: 82 Year
  Sex: Male
  Weight: 105 kg

DRUGS (7)
  1. XOLAIR [Suspect]
     Active Substance: OMALIZUMAB
     Dosage: UNK
     Route: 065
     Dates: start: 201905
  2. XOLAIR [Suspect]
     Active Substance: OMALIZUMAB
     Indication: URTICARIA CHRONIC
     Dosage: UNK
     Route: 058
     Dates: start: 20160922
  3. XOLAIR [Suspect]
     Active Substance: OMALIZUMAB
     Dosage: UNK
     Route: 065
     Dates: start: 201906
  4. XOLAIR [Suspect]
     Active Substance: OMALIZUMAB
     Indication: URTICARIA
     Dosage: 300 MG, QMO
     Route: 058
     Dates: start: 20160825
  5. XOLAIR [Suspect]
     Active Substance: OMALIZUMAB
     Dosage: UNK
     Route: 065
     Dates: start: 20170728
  6. CICLOSPORIN [Suspect]
     Active Substance: CYCLOSPORINE
     Indication: PRODUCT USED FOR UNKNOWN INDICATION
     Dosage: 200 MG, UNK
     Route: 065
  7. XOLAIR [Suspect]
     Active Substance: OMALIZUMAB
     Dosage: UNK
     Route: 065
     Dates: start: 20190903

REACTIONS (15)
  - Back injury [Unknown]
  - Pruritus generalised [Recovering/Resolving]
  - Cardiac disorder [Unknown]
  - Post procedural complication [Unknown]
  - Gait disturbance [Unknown]
  - Coronary artery disease [Unknown]
  - Gait inability [Unknown]
  - Malaise [Unknown]
  - Speech disorder [Unknown]
  - Mobility decreased [Unknown]
  - Generalised erythema [Not Recovered/Not Resolved]
  - Drug ineffective [Unknown]
  - Urinary tract infection [Unknown]
  - Urticaria [Recovering/Resolving]
  - Pain [Unknown]

NARRATIVE: CASE EVENT DATE: 20190903
